FAERS Safety Report 7273333-1 (Version None)
Quarter: 2011Q1

REPORT INFORMATION
  Report Type: 
  Country: None (occurrence: None)
  Receive Date: 20110203
  Receipt Date: 20110124
  Transmission Date: 20110831
  Serious: Yes (Hospitalization)
  Sender: FDA-Public Use
  Company Number: DE-AMGEN-DEUSP2010009896

PATIENT
  Age: 76 Year
  Sex: Female
  Weight: 57 kg

DRUGS (8)
  1. BISOPROLOL [Concomitant]
  2. FLUVAX [Concomitant]
  3. VITAMIN D [Concomitant]
     Dosage: 1 MG, UNK
  4. DUSODRIL [Concomitant]
  5. PANTOZOL                           /01263202/ [Concomitant]
  6. PROLIA [Suspect]
     Indication: OSTEOPOROSIS
     Dosage: 60 MG, UNK
     Route: 058
     Dates: start: 20100826
  7. CALCIUM [Concomitant]
  8. ATACAND [Concomitant]

REACTIONS (10)
  - ABDOMINAL PAIN UPPER [None]
  - STRESS [None]
  - PALPITATIONS [None]
  - NAUSEA [None]
  - DYSPNOEA [None]
  - KIDNEY SMALL [None]
  - MUSCLE SPASMS [None]
  - ANXIETY [None]
  - HYPERTENSION [None]
  - CREATININE RENAL CLEARANCE DECREASED [None]
